FAERS Safety Report 9352781 (Version 2)
Quarter: 2013Q3

REPORT INFORMATION
  Report Type: Spontaneous
  Country: US (occurrence: US)
  Receive Date: 20130618
  Receipt Date: 20130817
  Transmission Date: 20140515
  Serious: Yes (Hospitalization)
  Sender: FDA-Public Use
  Company Number: US-ROCHE-1234497

PATIENT
  Age: 63 Year
  Sex: Female

DRUGS (12)
  1. HERCEPTIN [Suspect]
     Indication: BREAST CANCER
     Route: 065
  2. HERCEPTIN [Suspect]
     Route: 065
  3. TAXOL [Suspect]
     Indication: BREAST CANCER
     Route: 065
  4. DECADRON [Suspect]
     Indication: PREMEDICATION
     Route: 065
  5. DECADRON [Suspect]
     Route: 065
  6. BENADRYL [Suspect]
     Indication: PREMEDICATION
     Route: 065
  7. DOCETAXEL [Suspect]
     Indication: BREAST CANCER
     Route: 065
  8. CISPLATIN [Suspect]
     Indication: BREAST CANCER
     Route: 065
  9. PREDNISONE [Suspect]
     Indication: PREMEDICATION
     Route: 065
  10. PEPCID [Concomitant]
     Indication: PREMEDICATION
     Route: 065
  11. CLARITIN [Concomitant]
     Indication: PREMEDICATION
  12. SALINE [Concomitant]
     Route: 065

REACTIONS (8)
  - Infusion related reaction [Unknown]
  - Haemoglobin decreased [Not Recovered/Not Resolved]
  - Haematocrit decreased [Not Recovered/Not Resolved]
  - Haemoptysis [Not Recovered/Not Resolved]
  - Lethargy [Recovered/Resolved]
  - Anxiety [Not Recovered/Not Resolved]
  - White blood cell count increased [Unknown]
  - Neutrophil count increased [Unknown]
